FAERS Safety Report 10058185 (Version 2)
Quarter: 2014Q2

REPORT INFORMATION
  Report Type: Spontaneous
  Country: US (occurrence: None)
  Receive Date: 20140402
  Receipt Date: 20140430
  Transmission Date: 20141212
  Serious: Yes (Other)
  Sender: FDA-Public Use
  Company Number: 2014-19264

PATIENT
  Age: 92 Year
  Sex: Female

DRUGS (6)
  1. EYLEA (AFLIBERCEPT) INJECTION)AFLIBERCEPT) [Suspect]
     Indication: AGE-RELATED MACULAR DEGENERATION
     Route: 031
     Dates: start: 20140227, end: 20140227
  2. FISH OIL (FISH OIL) [Concomitant]
  3. LISINOPRIL (LISINOPRIL) [Concomitant]
  4. OTHER THERAPEUTIC PRODUCTS (EYE VITAMINS) [Concomitant]
  5. ASPIRIN (ACETYLSALICYLIC ACID) [Concomitant]
  6. AGGRENOX (ACETYLSALICYLIC ACID, DIPYRIDAMOLE) [Concomitant]

REACTIONS (3)
  - Eye haemorrhage [None]
  - Drug administration error [None]
  - Conjunctival haemorrhage [None]
